FAERS Safety Report 11158104 (Version 1)
Quarter: 2015Q2

REPORT INFORMATION
  Report Type: Spontaneous
  Country: NL (occurrence: None)
  Receive Date: 20150601
  Receipt Date: 20150601
  Transmission Date: 20150821
  Serious: No
  Sender: FDA-Public Use
  Company Number: NL-FAC-000037

PATIENT
  Age: 29 Year
  Sex: Male

DRUGS (2)
  1. CEFUROXIME. [Suspect]
     Active Substance: CEFUROXIME
     Indication: ABDOMINAL ABSCESS
     Route: 042
  2. METRONIDAZOLE. [Suspect]
     Active Substance: METRONIDAZOLE
     Indication: ABDOMINAL ABSCESS
     Route: 042

REACTIONS (4)
  - Prothrombin time prolonged [None]
  - Pyrexia [None]
  - Activated partial thromboplastin time prolonged [None]
  - Appendiceal abscess [None]
